FAERS Safety Report 4648910-4 (Version None)
Quarter: 2005Q2

REPORT INFORMATION
  Report Type: 
  Country: None (occurrence: None)
  Receive Date: 20050427
  Receipt Date: 20050412
  Transmission Date: 20051028
  Serious: Yes (Hospitalization)
  Sender: FDA-Public Use
  Company Number: 2005-00782

PATIENT
  Age: 54 Year
  Sex: Male
  Weight: 87.1 kg

DRUGS (2)
  1. VELCADE [Suspect]
     Indication: MULTIPLE MYELOMA
     Dosage: 1.00MG/M2, 2/WEEK, INTRAVENOUS
     Route: 042
     Dates: start: 20050221, end: 20050321
  2. SCIO-469() CAPSULE [Suspect]
     Indication: MULTIPLE MYELOMA
     Dosage: 60.00 MG, TID, ORAL
     Route: 048
     Dates: start: 20050110, end: 20050321

REACTIONS (6)
  - ARTHRALGIA [None]
  - BACTERIAL CULTURE POSITIVE [None]
  - CATHETER RELATED INFECTION [None]
  - CHILLS [None]
  - FATIGUE [None]
  - PYREXIA [None]
